FAERS Safety Report 23388265 (Version 1)
Quarter: 2024Q1

REPORT INFORMATION
  Report Type: Spontaneous
  Country: IN (occurrence: IN)
  Receive Date: 20240110
  Receipt Date: 20240110
  Transmission Date: 20240410
  Serious: Yes (Hospitalization)
  Sender: FDA-Public Use
  Company Number: IN-STRIDES ARCOLAB LIMITED-2024SP000189

PATIENT
  Age: 29 Year
  Sex: Female

DRUGS (2)
  1. METHOTREXATE [Suspect]
     Active Substance: METHOTREXATE
     Indication: Gestational trophoblastic tumour
     Dosage: UNK, WEEKLY DOSES OF 50 MG
     Route: 065
  2. OSELTAMIVIR [Concomitant]
     Active Substance: OSELTAMIVIR
     Indication: Antibiotic therapy
     Dosage: UNK
     Route: 048

REACTIONS (2)
  - Pneumonitis [Recovered/Resolved]
  - Off label use [Unknown]
